FAERS Safety Report 10191792 (Version 1)
Quarter: 2014Q2

REPORT INFORMATION
  Report Type: Spontaneous
  Country: JP (occurrence: JP)
  Receive Date: 20140523
  Receipt Date: 20140523
  Transmission Date: 20141212
  Serious: Yes (Hospitalization, Other)
  Sender: FDA-Public Use
  Company Number: JP-WATSON-2014-10873

PATIENT
  Age: 49 Year
  Sex: Male

DRUGS (3)
  1. INDOMETACIN (UNKNOWN) [Suspect]
     Indication: PERICARDITIS
     Dosage: 50 MG, TID
     Route: 065
  2. IBUPROFEN (UNKNOWN) [Suspect]
     Indication: OSTEOARTHRITIS
     Dosage: 800 MG, DAILY
     Route: 065
  3. SIMVASTATIN [Concomitant]
     Indication: HYPERLIPIDAEMIA
     Dosage: UNK
     Route: 065

REACTIONS (1)
  - Duodenal ulcer perforation [Recovering/Resolving]
